FAERS Safety Report 5104548-6 (Version None)
Quarter: 2006Q3

REPORT INFORMATION
  Report Type: 
  Country: None (occurrence: None)
  Receive Date: 20060914
  Receipt Date: 20060905
  Transmission Date: 20061208
  Serious: Yes (Death)
  Sender: FDA-Public Use
  Company Number: US-JNJFOC-20060902031

PATIENT
  Age: 50 Year
  Sex: Male

DRUGS (3)
  1. FENTANYL [Suspect]
     Indication: UNEVALUABLE EVENT
     Route: 051
  2. DIAZEPAM [Concomitant]
     Indication: PAIN
     Route: 065
  3. VICODIN [Concomitant]
     Indication: PAIN
     Route: 065

REACTIONS (3)
  - CORONARY ARTERY DISEASE [None]
  - DRUG TOXICITY [None]
  - PULMONARY CONGESTION [None]
